FAERS Safety Report 5682695-8 (Version None)
Quarter: 2008Q1

REPORT INFORMATION
  Report Type: 
  Country: None (occurrence: None)
  Receive Date: 20080326
  Receipt Date: 20080326
  Transmission Date: 20080703
  Serious: No
  Sender: FDA-Public Use
  Company Number: None

PATIENT
  Age: 80 Year
  Sex: Female
  Weight: 64 kg

DRUGS (14)
  1. MORPHINE [Suspect]
     Indication: PAIN
     Dosage: SEE TEXT
     Dates: start: 20080216
  2. OXYCODONE HCL [Suspect]
     Indication: PAIN
     Dosage: SEE TEXT
     Dates: start: 20080216
  3. ASPIRIN [Concomitant]
  4. CLOPIDOGREL [Concomitant]
  5. DOCUSATE [Concomitant]
  6. HYDROCHLOROTHIAZIDE [Concomitant]
  7. INSULIN [Concomitant]
  8. ISOSORBIDE MONONITRATE [Concomitant]
  9. LANSOPRAZOLE [Concomitant]
  10. LATANOPROST [Concomitant]
  11. LOSARTAN POTASSIUM [Concomitant]
  12. METOPROLOL TARTRATE [Concomitant]
  13. POLYETHYLENE GLYCOL [Concomitant]
  14. SENNA [Concomitant]

REACTIONS (2)
  - HYPOXIA [None]
  - MENTAL STATUS CHANGES [None]
